FAERS Safety Report 6203585-8 (Version None)
Quarter: 2009Q2

REPORT INFORMATION
  Report Type: 
  Country: None (occurrence: None)
  Receive Date: 20090522
  Receipt Date: 20090522
  Transmission Date: 20091009
  Serious: Yes (Other)
  Sender: FDA-Public Use
  Company Number: None

PATIENT
  Age: 46 Year
  Sex: Female
  Weight: 58.9676 kg

DRUGS (6)
  1. PRISTIQ [Suspect]
     Indication: ANXIETY
     Dosage: 50 MG ONCE DAILY PO
     Route: 048
     Dates: start: 20080901
  2. FOCALIN XR [Concomitant]
  3. SINGULAIR [Concomitant]
  4. ZYRTEC [Concomitant]
  5. NASAL STEROID ALENDRONATE [Concomitant]
  6. . [Concomitant]

REACTIONS (1)
  - WEIGHT INCREASED [None]
